FAERS Safety Report 8935403 (Version 1)
Quarter: 2012Q4

REPORT INFORMATION
  Report Type: Spontaneous
  Country: DE (occurrence: None)
  Receive Date: 20121119
  Receipt Date: 20121119
  Transmission Date: 20130627
  Serious: Yes (Death)
  Sender: FDA-Public Use
  Company Number: 2012-19484

PATIENT
  Age: 51 Year
  Sex: Male

DRUGS (4)
  1. PARACETAMOL [Suspect]
     Indication: POSTOPERATIVE PAIN
  2. TEMOZOLOMIDE [Suspect]
     Indication: GLIOBLASTOMA MULTIFORME
  3. PANTOPRAZOLE [Concomitant]
  4. DEXAMETHASONE [Concomitant]

REACTIONS (5)
  - Hepatitis cholestatic [None]
  - No therapeutic response [None]
  - Liver injury [None]
  - Glioblastoma multiforme [None]
  - Neoplasm recurrence [None]
